FAERS Safety Report 20694433 (Version 1)
Quarter: 2022Q2

REPORT INFORMATION
  Report Type: Spontaneous
  Country: US (occurrence: US)
  Receive Date: 20220411
  Receipt Date: 20220411
  Transmission Date: 20220721
  Serious: Yes (Hospitalization, Other)
  Sender: FDA-Public Use
  Company Number: US-ALEMBIC PHARMACUETICALS LIMITED-2022SCAL000126

PATIENT

DRUGS (1)
  1. LAMOTRIGINE [Suspect]
     Active Substance: LAMOTRIGINE
     Indication: Seizure
     Dosage: UNK
     Route: 065

REACTIONS (15)
  - Cardiogenic shock [Unknown]
  - Cardiac arrest [Unknown]
  - Ventricular tachycardia [Unknown]
  - Pericarditis [Unknown]
  - Eosinophilic myocarditis [Unknown]
  - Chest pain [Unknown]
  - Hypotension [Unknown]
  - Tachycardia [Unknown]
  - Electrocardiogram change [Unknown]
  - Troponin increased [Unknown]
  - Drug reaction with eosinophilia and systemic symptoms [Unknown]
  - Pyrexia [Unknown]
  - Rash [Unknown]
  - Lymphadenopathy [Unknown]
  - Eosinophilia [Unknown]
